FAERS Safety Report 20533386 (Version 1)
Quarter: 2022Q1

REPORT INFORMATION
  Report Type: Spontaneous
  Country: JP (occurrence: JP)
  Receive Date: 20220301
  Receipt Date: 20220301
  Transmission Date: 20220423
  Serious: Yes (Hospitalization)
  Sender: FDA-Public Use
  Company Number: JP-PFIZER INC-202200280878

PATIENT
  Age: 72 Year
  Sex: Male

DRUGS (13)
  1. DOXORUBICIN HYDROCHLORIDE [Suspect]
     Active Substance: DOXORUBICIN HYDROCHLORIDE
     Indication: Diffuse large B-cell lymphoma stage IV
     Dosage: 2750 MG/M2, CYCLIC
  2. DOXORUBICIN HYDROCHLORIDE [Suspect]
     Active Substance: DOXORUBICIN HYDROCHLORIDE
     Dosage: DAY 2
  3. DOXORUBICIN HYDROCHLORIDE [Suspect]
     Active Substance: DOXORUBICIN HYDROCHLORIDE
     Dosage: FROM DAY 1 TO DAY 3 OF ADMISSION
  4. RITUXIMAB [Suspect]
     Active Substance: RITUXIMAB
     Indication: Diffuse large B-cell lymphoma stage IV
     Dosage: DAY 1
  5. RITUXIMAB [Suspect]
     Active Substance: RITUXIMAB
     Dosage: FROM DAY 1 TO DAY 3 OF ADMISSION
  6. CYCLOPHOSPHAMIDE [Suspect]
     Active Substance: CYCLOPHOSPHAMIDE
     Indication: Diffuse large B-cell lymphoma stage IV
     Dosage: 750 MG/M2, CYCLIC, DAY 2
  7. CYCLOPHOSPHAMIDE [Suspect]
     Active Substance: CYCLOPHOSPHAMIDE
     Dosage: FROM DAY 1 TO DAY 3 OF ADMISSION
  8. VINCRISTINE [Suspect]
     Active Substance: VINCRISTINE
     Indication: Diffuse large B-cell lymphoma stage IV
     Dosage: 1.4 MG/M2, CYCLIC, DAY 2
  9. VINCRISTINE [Suspect]
     Active Substance: VINCRISTINE
     Dosage: FROM DAY 1 TO DAY 3 OF ADMISSION
  10. PREDNISOLONE [Suspect]
     Active Substance: PREDNISOLONE
     Indication: Diffuse large B-cell lymphoma stage IV
     Dosage: ON DAY 2-6, EVERY 3 WEEKS
  11. PREDNISOLONE [Suspect]
     Active Substance: PREDNISOLONE
     Dosage: FROM DAY 1 TO DAY 3 OF ADMISSION
  12. FILGRASTIM [Suspect]
     Active Substance: FILGRASTIM
     Indication: Diffuse large B-cell lymphoma stage IV
     Dosage: DAY 4 TO DAY 12
     Route: 058
  13. FILGRASTIM [Suspect]
     Active Substance: FILGRASTIM
     Dosage: DAY 4
     Route: 058

REACTIONS (2)
  - Disease recurrence [Recovered/Resolved]
  - Helicobacter infection [Recovered/Resolved]
